FAERS Safety Report 7658096-X (Version None)
Quarter: 2011Q3

REPORT INFORMATION
  Report Type: 
  Country: None (occurrence: None)
  Receive Date: 20110802
  Receipt Date: 20110720
  Transmission Date: 20111222
  Serious: Yes (Disabling)
  Sender: FDA-Public Use
  Company Number: DSM-2011-00630

PATIENT
  Age: 74 Year
  Sex: Female
  Weight: 75 kg

DRUGS (9)
  1. PROPOFAN (CAFFEINE, PARACETAMOL, DEXTROPROPOXYPHENE) (CAFFEINE, PARACE [Concomitant]
  2. ZOLPIDEM (ZOLPIDEM) (10 MILLIGRAM) (ZOLPIDEM) [Concomitant]
  3. ESBERIVEN FORT (RUTOSIDE, MELILOTUS OFFICINALIS) (RUTOSIDE, MELLOTUS O [Concomitant]
  4. VOLTARENE (DICLOFENAC SODIUM) (DICLOFENAC SODIUM) [Concomitant]
  5. LAROXYL (AMITRIPTYLINE HYDROCHLORIDE) (25 MILLIGRAM) (AMITRIPTYLINE  H [Concomitant]
  6. AXELER (OLMESARTAN MEDOXOMIL, AMLODIPINE BESILATE) (TABLET) (OLMESARTA [Suspect]
     Indication: HYPERTENSION
     Dosage: 20/5MG, ORAL
     Route: 048
     Dates: start: 20090708, end: 20100901
  7. VASTAREL LM (TRIMETAZIDINE) (35 MILLIGRAM) (TRIMETAZIDE) [Concomitant]
  8. EURELIX (PIRETANIDE) (6 MILLIGRAM) (PIRETANIDE) [Concomitant]
  9. TETRAZEPAM (TETRAZEPAM) (TETRAZEPAM) [Concomitant]

REACTIONS (45)
  - GENERAL PHYSICAL HEALTH DETERIORATION [None]
  - DEAFNESS TRANSITORY [None]
  - DYSPNOEA [None]
  - MUSCLE SPASMS [None]
  - MICTURITION URGENCY [None]
  - URINARY TRACT INFECTION [None]
  - DYSGEUSIA [None]
  - YELLOW SKIN [None]
  - ALOPECIA [None]
  - PALPITATIONS [None]
  - NAUSEA [None]
  - CONSTIPATION [None]
  - BACK PAIN [None]
  - VISUAL IMPAIRMENT [None]
  - DIZZINESS POSTURAL [None]
  - PARAESTHESIA [None]
  - DYSPEPSIA [None]
  - PAIN IN EXTREMITY [None]
  - CONTUSION [None]
  - DERMATITIS ALLERGIC [None]
  - TINNITUS [None]
  - DECREASED APPETITE [None]
  - HYPOTENSION [None]
  - DEPRESSION [None]
  - HYPERHIDROSIS [None]
  - DIZZINESS [None]
  - FATIGUE [None]
  - DRY MOUTH [None]
  - ABDOMINAL PAIN [None]
  - ARTHRALGIA [None]
  - BONE PAIN [None]
  - FLUSHING [None]
  - RHINITIS [None]
  - ANXIETY [None]
  - MONOPLEGIA [None]
  - WEIGHT DECREASED [None]
  - IRRITABILITY [None]
  - ASTHENIA [None]
  - COUGH [None]
  - ANGINA PECTORIS [None]
  - MALAISE [None]
  - SLEEP DISORDER [None]
  - PURPURA [None]
  - HEADACHE [None]
  - CHILLS [None]
